FAERS Safety Report 15154651 (Version 1)
Quarter: 2018Q3

REPORT INFORMATION
  Report Type: Report from Study
  Country: JP (occurrence: JP)
  Receive Date: 20180717
  Receipt Date: 20180717
  Transmission Date: 20181010
  Serious: Yes (Death)
  Sender: FDA-Public Use
  Company Number: JP-CELLTRION INC.-2017JP010182

PATIENT

DRUGS (11)
  1. INFLIXIMAB BS FOR I.V. INFUSION100 MG [NK] [Suspect]
     Active Substance: INFLIXIMAB
     Indication: CROHN^S DISEASE
     Dosage: 5MG/BODY/DAY
     Route: 042
     Dates: start: 20170327, end: 20170327
  2. INFLIXIMAB BS FOR I.V. INFUSION100 MG [NK] [Suspect]
     Active Substance: INFLIXIMAB
     Dosage: 5MG/BODY/DAY
     Route: 042
     Dates: start: 20170529, end: 20170529
  3. URIEF [Concomitant]
     Active Substance: SILODOSIN
     Indication: CALCULUS URINARY
     Dosage: 8 MG, DAILY
     Dates: start: 20170522
  4. BORRAZA G [Concomitant]
     Active Substance: LIDOCAINE\TRIBENOSIDE
     Indication: ANAL FISTULA
     Dosage: 2.40 G, DAILY
     Dates: start: 20170321, end: 20170528
  5. HARNAL [Concomitant]
     Active Substance: TAMSULOSIN HYDROCHLORIDE
     Dosage: 0.2 MG, DAILY
     Dates: start: 20170518, end: 20170528
  6. ALFAROL [Concomitant]
     Active Substance: ALFACALCIDOL
     Indication: OSTEOPOROSIS PROPHYLAXIS
     Dosage: 1.00 ?G, DAILY
     Dates: start: 20110905
  7. PENTASA [Concomitant]
     Active Substance: MESALAMINE
     Dosage: 3000 MG, DAILY
     Dates: start: 20080218
  8. IMURAN [Concomitant]
     Active Substance: AZATHIOPRINE
     Dosage: 100 MG, DAILY
     Dates: start: 20070618
  9. FERROMIA [Concomitant]
     Active Substance: SODIUM FERROUS CITRATE
     Indication: IRON DEFICIENCY ANAEMIA
     Dosage: 50.00 MG, DAILY
     Dates: start: 20150629
  10. INFLIXIMAB BS FOR I.V. INFUSION100 MG [NK] [Suspect]
     Active Substance: INFLIXIMAB
     Dosage: 5MG/BODY/DAY
     Route: 042
     Dates: start: 20170724, end: 20170724
  11. MIYA?BM [Concomitant]
     Active Substance: CLOSTRIDIUM BUTYRICUM SPORES STRAIN M-55
     Indication: CROHN^S DISEASE
     Dosage: 60 MG, DAILY
     Dates: start: 20090126

REACTIONS (2)
  - Inappropriate schedule of drug administration [Unknown]
  - Death [Fatal]
